FAERS Safety Report 9850668 (Version 1)
Quarter: 2013Q4

REPORT INFORMATION
  Report Type: Spontaneous
  Country: US (occurrence: None)
  Receive Date: 20131127
  Receipt Date: 20131127
  Transmission Date: 20140711
  Serious: No
  Sender: FDA-Public Use
  Company Number: 223452LEO

PATIENT
  Age: 54 Year
  Sex: Male

DRUGS (1)
  1. PICATO [Suspect]
     Indication: ACTINIC KERATOSIS
     Route: 061
     Dates: start: 20130813, end: 20130814

REACTIONS (6)
  - Application site vesicles [None]
  - Application site pain [None]
  - Application site scab [None]
  - Medication error [None]
  - Drug dispensing error [None]
  - Incorrect dose administered [None]
